FAERS Safety Report 7233339-5 (Version None)
Quarter: 2011Q1

REPORT INFORMATION
  Report Type: 
  Country: None (occurrence: None)
  Receive Date: 20110119
  Receipt Date: 20110106
  Transmission Date: 20110831
  Serious: Yes (Hospitalization, Other)
  Sender: FDA-Public Use
  Company Number: US-ROCHE-747129

PATIENT
  Sex: Female

DRUGS (3)
  1. RIBASPHERE [Suspect]
     Indication: HEPATITIS C
     Dosage: DIVIDED DOSES
     Route: 065
     Dates: start: 20101201
  2. PEGASYS [Suspect]
     Indication: HEPATITIS C
     Route: 065
     Dates: start: 20101201
  3. AMBIEN [Concomitant]

REACTIONS (11)
  - VOMITING [None]
  - INSOMNIA [None]
  - ASTHENIA [None]
  - LOSS OF CONSCIOUSNESS [None]
  - NAUSEA [None]
  - SKIN WARM [None]
  - RASH VESICULAR [None]
  - PRURITUS [None]
  - JOINT SWELLING [None]
  - ALOPECIA [None]
  - DEHYDRATION [None]
